FAERS Safety Report 4936814-9 (Version None)
Quarter: 2006Q1

REPORT INFORMATION
  Report Type: 
  Country: None (occurrence: None)
  Receive Date: 20060307
  Receipt Date: 20050304
  Transmission Date: 20060701
  Serious: Yes (Hospitalization)
  Sender: FDA-Public Use
  Company Number: US-MERCK-0503USA00939

PATIENT
  Age: 62 Year
  Sex: Female
  Weight: 68 kg

DRUGS (8)
  1. VIOXX [Suspect]
     Indication: ARTHRITIS
     Route: 048
     Dates: start: 20020203, end: 20040922
  2. PREMARIN [Concomitant]
     Route: 065
  3. ALLEGRA [Concomitant]
     Route: 065
  4. LISINOPRIL [Concomitant]
     Route: 065
  5. GLYBURIDE [Concomitant]
     Route: 065
  6. GLEEVEC [Concomitant]
     Route: 065
  7. TIAZAC [Concomitant]
     Route: 065
  8. DILTIAZEM HYDROCHLORIDE [Concomitant]
     Route: 065

REACTIONS (2)
  - ACCIDENT [None]
  - CEREBROVASCULAR ACCIDENT [None]
